FAERS Safety Report 20152988 (Version 18)
Quarter: 2022Q4

REPORT INFORMATION
  Report Type: Report from Study
  Country: CN (occurrence: None)
  Receive Date: 20211206
  Receipt Date: 20221206
  Transmission Date: 20230113
  Serious: Yes (Life-Threatening, Hospitalization)
  Sender: FDA-Public Use
  Company Number: CN-ROCHE-2971628

PATIENT
  Age: 52 Year
  Sex: Male
  Weight: 70 kg

DRUGS (32)
  1. ATEZOLIZUMAB [Suspect]
     Active Substance: ATEZOLIZUMAB
     Indication: Hepatocellular carcinoma
     Dosage: DATE OF MOST RECENT DOSE OF STUDY DRUG PRIOR TO ADVERSE EVENT  PRIOR TO AE AND SAE ON 15-OCT-2021, 0
     Route: 041
     Dates: start: 20210501
  2. BEVACIZUMAB [Suspect]
     Active Substance: BEVACIZUMAB
     Indication: Hepatocellular carcinoma
     Dosage: DATE OF MOST RECENT DOSE OF BEVACIZUMAB PRIOR ADVERSE EVNT PRIOR TO AE AND SAE IS 15/OCT/2021, 05/OC
     Route: 042
     Dates: start: 20210501
  3. GLIMEPIRIDE [Concomitant]
     Active Substance: GLIMEPIRIDE
     Indication: Type 2 diabetes mellitus
     Route: 048
     Dates: start: 2018
  4. METFORMIN HYDROCHLORIDE [Concomitant]
     Active Substance: METFORMIN HYDROCHLORIDE
     Indication: Type 2 diabetes mellitus
     Dates: start: 2018
  5. ENTECAVIR [Concomitant]
     Active Substance: ENTECAVIR
     Indication: Hepatitis B
     Dates: start: 20210328
  6. AMLODIPINE\VALSARTAN [Concomitant]
     Active Substance: AMLODIPINE\VALSARTAN
     Indication: Hypertension
     Dates: start: 20210611, end: 20220503
  7. OCTREOTIDE [Concomitant]
     Active Substance: OCTREOTIDE
  8. OMEPRAZOLE [Concomitant]
     Active Substance: OMEPRAZOLE
  9. POTASSIUM CHLORIDE [Concomitant]
     Active Substance: POTASSIUM CHLORIDE
     Dates: start: 20211105, end: 20211105
  10. POTASSIUM CHLORIDE [Concomitant]
     Active Substance: POTASSIUM CHLORIDE
     Dates: start: 20211201, end: 20211201
  11. POTASSIUM CHLORIDE [Concomitant]
     Active Substance: POTASSIUM CHLORIDE
     Dates: start: 20211202, end: 20211202
  12. POTASSIUM CHLORIDE [Concomitant]
     Active Substance: POTASSIUM CHLORIDE
     Dates: start: 20211203, end: 20211203
  13. POTASSIUM CHLORIDE [Concomitant]
     Active Substance: POTASSIUM CHLORIDE
     Dates: start: 20211206, end: 20211206
  14. POTASSIUM CHLORIDE [Concomitant]
     Active Substance: POTASSIUM CHLORIDE
     Dates: start: 20211207, end: 20211207
  15. SODIUM CHLORIDE [Concomitant]
     Active Substance: SODIUM CHLORIDE
     Dates: start: 20211105, end: 20211105
  16. INSULIN NOS [Concomitant]
     Active Substance: INSULIN NOS
     Dates: start: 20211105, end: 20211105
  17. INSULIN NOS [Concomitant]
     Active Substance: INSULIN NOS
     Dates: start: 20211201, end: 20211201
  18. TRANSMETIL [ADEMETIONINE 1,4-BUTANEDISULFONATE] [Concomitant]
     Indication: Hepatic cirrhosis
     Dates: start: 20211124, end: 20211127
  19. GLUTATHIONE [Concomitant]
     Active Substance: GLUTATHIONE
     Indication: Hepatic cirrhosis
     Dates: start: 20211124, end: 20211127
  20. URSODIOL [Concomitant]
     Active Substance: URSODIOL
     Indication: Hepatic cirrhosis
     Dates: start: 20211015, end: 20211126
  21. THROMBOPOIETIN [Concomitant]
     Active Substance: THROMBOPOIETIN
     Indication: Platelet count decreased
     Dates: start: 20211124, end: 20211127
  22. SUCRALFATE [Concomitant]
     Active Substance: SUCRALFATE
     Dates: start: 20211216, end: 20211226
  23. HYDROTALCITE [Concomitant]
     Active Substance: HYDROTALCITE
     Dates: start: 20211216, end: 20220108
  24. ANLUOHUAXIAN [Concomitant]
     Indication: Hepatic cirrhosis
     Dates: start: 20220701
  25. CARVEDILOL [Concomitant]
     Active Substance: CARVEDILOL
     Dates: start: 20211218, end: 20220109
  26. VITAMIN K1 [Concomitant]
     Active Substance: PHYTONADIONE
     Dates: start: 20211201, end: 20211203
  27. SPIRONOLACTONE [Concomitant]
     Active Substance: SPIRONOLACTONE
     Route: 048
  28. COMPOUND SODIUM ACETATE RINGER^S [Concomitant]
     Dates: start: 20211130, end: 20211204
  29. THROMBIN [Concomitant]
     Active Substance: THROMBIN
     Indication: Prophylaxis
     Dosage: LYOPHILIZING THROMBIN POWDER
     Dates: start: 20211130, end: 20211203
  30. SODIUM CHLORIDE [Concomitant]
     Active Substance: SODIUM CHLORIDE
     Dates: start: 20211203, end: 20211206
  31. PHOSPHOLIPID [Concomitant]
     Active Substance: PHOSPHOLIPID
     Indication: Hepatic function abnormal
     Dates: start: 20211216
  32. GLUTATHIONE [Concomitant]
     Active Substance: GLUTATHIONE
     Indication: Hepatic function abnormal
     Dates: start: 20211105, end: 20211108

REACTIONS (5)
  - Oesophageal varices haemorrhage [Recovered/Resolved]
  - Varices oesophageal [Recovered/Resolved]
  - Incarcerated inguinal hernia [Recovered/Resolved]
  - Intestinal obstruction [Recovered/Resolved]
  - Inguinal hernia [Recovered/Resolved]

NARRATIVE: CASE EVENT DATE: 20211129
